FAERS Safety Report 23364493 (Version 1)
Quarter: 2024Q1

REPORT INFORMATION
  Report Type: Spontaneous
  Country: ES (occurrence: ES)
  Receive Date: 20240104
  Receipt Date: 20240104
  Transmission Date: 20240410
  Serious: Yes (Other)
  Sender: FDA-Public Use
  Company Number: ES-SA-SAC20240101000829

PATIENT
  Sex: Male
  Weight: 108 kg

DRUGS (3)
  1. LANTUS [Suspect]
     Active Substance: INSULIN GLARGINE
     Indication: Type 2 diabetes mellitus
     Dosage: UNK
     Route: 058
  2. XIGDUO XR [Concomitant]
     Active Substance: DAPAGLIFLOZIN PROPANEDIOL\METFORMIN HYDROCHLORIDE
  3. AMARYL [Concomitant]
     Active Substance: GLIMEPIRIDE
     Indication: Type 2 diabetes mellitus
     Route: 048

REACTIONS (5)
  - Blindness [Unknown]
  - Vision blurred [Recovered/Resolved]
  - Movement disorder [Recovering/Resolving]
  - Road traffic accident [Recovering/Resolving]
  - Blood glucose increased [Recovered/Resolved]
